FAERS Safety Report 14475680 (Version 2)
Quarter: 2018Q2

REPORT INFORMATION
  Report Type: Report from Study
  Country: FR (occurrence: FR)
  Receive Date: 20180201
  Receipt Date: 20180608
  Transmission Date: 20180711
  Serious: Yes (Death, Hospitalization, Other)
  Sender: FDA-Public Use
  Company Number: FR-SEATTLE GENETICS-2018SGN00151

PATIENT
  Age: 58 Year
  Sex: Male
  Weight: 47 kg

DRUGS (4)
  1. BRENTUXIMAB VEDOTIN-MPI [Suspect]
     Active Substance: BRENTUXIMAB VEDOTIN
     Indication: ANAPLASTIC LARGE CELL LYMPHOMA T- AND NULL-CELL TYPES
     Dosage: UNK
     Route: 042
     Dates: start: 20170727, end: 20170907
  2. PIPERACILLIN SODIUM, TAZOBACTAM SODIUM [Concomitant]
     Active Substance: PIPERACILLIN SODIUM\TAZOBACTAM SODIUM
     Indication: HERPES SIMPLEX TEST POSITIVE
     Dosage: UNK
     Route: 065
     Dates: start: 20180122, end: 20180224
  3. SULFAMETHOXAZOLE, TRIMETHOPRIM [Concomitant]
     Active Substance: SULFAMETHOXAZOLE\TRIMETHOPRIM
     Dosage: UNK
     Route: 065
     Dates: start: 20180122, end: 20180124
  4. ACICLOVIR [Concomitant]
     Active Substance: ACYCLOVIR
     Dosage: UNK
     Route: 065
     Dates: end: 20180207

REACTIONS (8)
  - Chemotherapy [Unknown]
  - Influenza [Fatal]
  - Rash maculo-papular [Fatal]
  - Palmar-plantar erythrodysaesthesia syndrome [Fatal]
  - Acute respiratory distress syndrome [Fatal]
  - Septic shock [Fatal]
  - Weight decreased [Unknown]
  - Herpes simplex test positive [Unknown]

NARRATIVE: CASE EVENT DATE: 20170818
